FAERS Safety Report 7206912-8 (Version None)
Quarter: 2011Q1

REPORT INFORMATION
  Report Type: 
  Country: None (occurrence: None)
  Receive Date: 20110103
  Receipt Date: 20101224
  Transmission Date: 20110831
  Serious: Yes (Hospitalization)
  Sender: FDA-Public Use
  Company Number: JP-ASTRAZENECA-2010SE37915

PATIENT
  Age: 28067 Day
  Sex: Male
  Weight: 54 kg

DRUGS (7)
  1. ARTIST [Concomitant]
     Indication: MYOCARDIAL INFARCTION
     Route: 048
  2. PLAVIX [Concomitant]
     Indication: MYOCARDIAL INFARCTION
     Route: 048
  3. PROTECADIN [Concomitant]
     Indication: GASTRIC ULCER
     Route: 048
  4. FERROUS CITRATE [Concomitant]
     Indication: IRON DEFICIENCY ANAEMIA
     Route: 048
  5. ZOLADEX [Suspect]
     Indication: BENIGN PROSTATIC HYPERPLASIA
     Route: 058
     Dates: start: 20100312, end: 20100709
  6. CALBLOCK [Concomitant]
     Indication: HYPERTENSION
     Route: 048
  7. LIPITOR [Concomitant]
     Indication: HYPERLIPIDAEMIA
     Route: 048

REACTIONS (1)
  - INTERSTITIAL LUNG DISEASE [None]
